FAERS Safety Report 10065567 (Version 3)
Quarter: 2020Q1

REPORT INFORMATION
  Report Type: Report from Study
  Country: US (occurrence: US)
  Receive Date: 20140408
  Receipt Date: 20200207
  Transmission Date: 20200409
  Serious: Yes (Other)
  Sender: FDA-Public Use
  Company Number: US-SANOFI-AVENTIS-2013SA078020

PATIENT
  Age: 42 Year
  Sex: Female

DRUGS (1)
  1. TERIFLUNOMIDE. [Suspect]
     Active Substance: TERIFLUNOMIDE
     Indication: MULTIPLE SCLEROSIS
     Dosage: 14 MG,QD
     Route: 048
     Dates: start: 20130708, end: 2017

REACTIONS (12)
  - Paraesthesia [Not Recovered/Not Resolved]
  - Limb operation [Unknown]
  - Muscular weakness [Not Recovered/Not Resolved]
  - Tinea infection [Unknown]
  - Jaundice [Unknown]
  - Carpal tunnel decompression [Unknown]
  - Hypoaesthesia [Not Recovered/Not Resolved]
  - Vascular pain [Unknown]
  - Balance disorder [Unknown]
  - Formication [Unknown]
  - Liver function test increased [Unknown]
  - Rash [Unknown]

NARRATIVE: CASE EVENT DATE: 201401
